FAERS Safety Report 5812366-6 (Version None)
Quarter: 2008Q3

REPORT INFORMATION
  Report Type: 
  Country: None (occurrence: None)
  Receive Date: 20080716
  Receipt Date: 20080704
  Transmission Date: 20090109
  Serious: Yes (Other)
  Sender: FDA-Public Use
  Company Number: JP-PFIZER INC-2008055349

PATIENT
  Age: 73 Year
  Sex: Male

DRUGS (1)
  1. ADRIACIN [Suspect]
     Indication: CHONDROSARCOMA
     Route: 042

REACTIONS (1)
  - DELIRIUM [None]
